FAERS Safety Report 24060608 (Version 1)
Quarter: 2024Q3

REPORT INFORMATION
  Report Type: Spontaneous
  Country: US (occurrence: None)
  Receive Date: 20240705
  Receipt Date: 20240705
  Transmission Date: 20241016
  Serious: Yes (Life-Threatening, Disabling)
  Sender: Public
  Company Number: None

PATIENT
  Age: 35 Year
  Sex: Male
  Weight: 103.5 kg

DRUGS (1)
  1. QVAR REDIHALER [Suspect]
     Active Substance: BECLOMETHASONE DIPROPIONATE
     Dosage: 2 PUF(S)  TWICE A DAY ORAL
     Route: 048
     Dates: start: 20240501, end: 20240626

REACTIONS (4)
  - Headache [None]
  - Dizziness [None]
  - Mental impairment [None]
  - Asthenia [None]

NARRATIVE: CASE EVENT DATE: 20240626
